FAERS Safety Report 7054590-3 (Version None)
Quarter: 2010Q4

REPORT INFORMATION
  Report Type: 
  Country: None (occurrence: None)
  Receive Date: 20101015
  Receipt Date: 20101006
  Transmission Date: 20110411
  Serious: Yes (Life-Threatening, Hospitalization, Other)
  Sender: FDA-Public Use
  Company Number: DSA_43180_2010

PATIENT
  Sex: Female

DRUGS (1)
  1. APLENZIN [Suspect]
     Indication: DEPRESSION
     Dosage: (DF)
     Dates: start: 20090801, end: 20091101

REACTIONS (2)
  - AUTOIMMUNE HEPATITIS [None]
  - INTERNATIONAL NORMALISED RATIO INCREASED [None]
